FAERS Safety Report 5115090-0 (Version None)
Quarter: 2006Q3

REPORT INFORMATION
  Report Type: 
  Country: None (occurrence: None)
  Receive Date: 20060926
  Receipt Date: 20060613
  Transmission Date: 20061208
  Serious: No
  Sender: FDA-Public Use
  Company Number: US-BRISTOL-MYERS SQUIBB COMPANY-13410584

PATIENT
  Sex: Female
  Weight: 65 kg

DRUGS (3)
  1. BARACLUDE TABS [Suspect]
     Indication: HEPATITIS B
     Route: 048
     Dates: start: 20051201
  2. ZYRTEC [Concomitant]
     Indication: SEASONAL ALLERGY
  3. MULTI-VITAMIN [Concomitant]

REACTIONS (1)
  - PREGNANCY [None]
